FAERS Safety Report 15034743 (Version 1)
Quarter: 2018Q2

REPORT INFORMATION
  Report Type: Report from Study
  Country: CL (occurrence: CL)
  Receive Date: 20180620
  Receipt Date: 20180620
  Transmission Date: 20180711
  Serious: Yes (Other)
  Sender: FDA-Public Use
  Company Number: CL-BRISTOL-MYERS SQUIBB COMPANY-BMS-2018-055216

PATIENT
  Sex: Male

DRUGS (1)
  1. NIVOLUMAB [Suspect]
     Active Substance: NIVOLUMAB
     Indication: RENAL CANCER
     Dosage: UNK, Q2WK
     Route: 042
     Dates: start: 20170609

REACTIONS (3)
  - Cyst [Recovering/Resolving]
  - Gastric ulcer [Unknown]
  - Decreased appetite [Recovering/Resolving]
